FAERS Safety Report 9922415 (Version 2)
Quarter: 2014Q1

REPORT INFORMATION
  Report Type: Spontaneous
  Country: DE (occurrence: DE)
  Receive Date: 20140225
  Receipt Date: 20140225
  Transmission Date: 20141002
  Serious: Yes (Hospitalization, Other)
  Sender: FDA-Public Use
  Company Number: US-ASTRAZENECA-2013SE82931

PATIENT
  Age: 60 Year
  Sex: Male
  Weight: 115 kg

DRUGS (6)
  1. CANDESARTAN [Suspect]
     Route: 048
  2. FORXIGA [Suspect]
     Indication: TYPE 2 DIABETES MELLITUS
     Route: 048
     Dates: start: 201302, end: 201310
  3. METFORMIN HCL (BMS) [Suspect]
     Indication: TYPE 2 DIABETES MELLITUS
     Route: 065
  4. ALLOPURINOL [Suspect]
     Route: 065
  5. LEVEMIR [Suspect]
     Route: 065
  6. NOVORAPID [Suspect]
     Route: 065

REACTIONS (3)
  - Mania [Not Recovered/Not Resolved]
  - Psychotic behaviour [Not Recovered/Not Resolved]
  - Weight decreased [Not Recovered/Not Resolved]
